FAERS Safety Report 5754047-3 (Version None)
Quarter: 2008Q2

REPORT INFORMATION
  Report Type: 
  Country: None (occurrence: None)
  Receive Date: 20080527
  Receipt Date: 20080527
  Transmission Date: 20081010
  Serious: Yes (Life-Threatening)
  Sender: FDA-Public Use
  Company Number: None

PATIENT
  Sex: Female
  Weight: 49.8957 kg

DRUGS (1)
  1. OPTIRAY INJECTION 120CC NO INFO ON REPORT [Suspect]
     Indication: THYROID DISORDER
     Dosage: 120CC ANGIOCATH

REACTIONS (16)
  - ABDOMINAL PAIN [None]
  - ASTHENIA [None]
  - BONE PAIN [None]
  - BURNING SENSATION [None]
  - DRUG TOXICITY [None]
  - FATIGUE [None]
  - FEELING ABNORMAL [None]
  - HERPES ZOSTER [None]
  - INJECTION SITE IRRITATION [None]
  - PAIN [None]
  - PALLOR [None]
  - PRURITUS [None]
  - RASH [None]
  - RENAL PAIN [None]
  - SKIN WRINKLING [None]
  - SWELLING [None]
